FAERS Safety Report 6393091-2 (Version None)
Quarter: 2009Q4

REPORT INFORMATION
  Report Type: 
  Country: None (occurrence: None)
  Receive Date: 20091008
  Receipt Date: 20091001
  Transmission Date: 20100525
  Serious: Yes (Other)
  Sender: FDA-Public Use
  Company Number: FI-ROCHE-659973

PATIENT
  Sex: Male

DRUGS (1)
  1. XELODA [Suspect]
     Dosage: FREQUENCY: 4+4 TABLETS PER DAY. INDICATION OF THE DRUG REPORTED AS BOWEL CANCER (C 18.01).
     Route: 048
     Dates: start: 20090101

REACTIONS (3)
  - ECCHYMOSIS [None]
  - OEDEMA PERIPHERAL [None]
  - THROMBOSIS [None]
